FAERS Safety Report 25395598 (Version 1)
Quarter: 2025Q2

REPORT INFORMATION
  Report Type: Spontaneous
  Country: US (occurrence: US)
  Receive Date: 20250604
  Receipt Date: 20250604
  Transmission Date: 20250717
  Serious: Yes (Other)
  Sender: HIKMA
  Company Number: US-HIKMA PHARMACEUTICALS USA INC.-US-H14001-25-04829

PATIENT
  Sex: Female

DRUGS (1)
  1. FLUTICASONE PROPIONATE [Suspect]
     Active Substance: FLUTICASONE PROPIONATE
     Indication: Hypersensitivity
     Dosage: 1 DOSAGE FORM, BID
     Route: 045

REACTIONS (5)
  - Sinus congestion [Unknown]
  - Malaise [Unknown]
  - Suspected product contamination [Unknown]
  - Product odour abnormal [Unknown]
  - Off label use [Unknown]
